FAERS Safety Report 22318079 (Version 4)
Quarter: 2024Q1

REPORT INFORMATION
  Report Type: Spontaneous
  Country: US (occurrence: US)
  Receive Date: 20230515
  Receipt Date: 20240112
  Transmission Date: 20240410
  Serious: Yes (Other)
  Sender: FDA-Public Use
  Company Number: US-NOVOPROD-1060259

PATIENT
  Age: 35 Year
  Sex: Female
  Weight: 97.959 kg

DRUGS (1)
  1. WEGOVY [Suspect]
     Active Substance: SEMAGLUTIDE
     Indication: Weight decreased
     Dosage: 0.5 MG
     Route: 058
     Dates: start: 202302, end: 202304

REACTIONS (3)
  - Abortion spontaneous [Recovered/Resolved]
  - Counterfeit product administered [Recovered/Resolved]
  - Maternal exposure during pregnancy [Recovered/Resolved]

NARRATIVE: CASE EVENT DATE: 20230201
